FAERS Safety Report 10413292 (Version 1)
Quarter: 2014Q3

REPORT INFORMATION
  Report Type: Spontaneous
  Country: US (occurrence: US)
  Receive Date: 20140827
  Receipt Date: 20140827
  Transmission Date: 20150326
  Serious: Yes (Other)
  Sender: FDA-Public Use
  Company Number: US-PFIZER INC-2014234057

PATIENT
  Age: 76 Year
  Sex: Female
  Weight: 112.93 kg

DRUGS (12)
  1. ARAVA [Concomitant]
     Active Substance: LEFLUNOMIDE
     Dosage: 20 MG, DAILY
     Route: 048
     Dates: start: 20130916
  2. ROPINIROLE. [Concomitant]
     Active Substance: ROPINIROLE
     Dosage: 1 MG, 3X/DAY (1 TAB IN MORNING, 1 TAB IN SFTERNEON, 2 TABS AT BEDIME)
     Route: 048
     Dates: start: 20140728
  3. SPIRONOLACTONE. [Concomitant]
     Active Substance: SPIRONOLACTONE
     Dosage: 25 MG, UNK
     Route: 048
     Dates: start: 20140321
  4. LISINOPRIL. [Concomitant]
     Active Substance: LISINOPRIL
     Dosage: 2.5 MG, DAILY
     Route: 048
  5. LYRICA [Suspect]
     Active Substance: PREGABALIN
     Dosage: 150 MG, 3X/DAY
     Route: 048
     Dates: start: 20140321
  6. ROPINIROLE. [Concomitant]
     Active Substance: ROPINIROLE
     Dosage: 2 MG, 3X/DAY  (1 TAB IN MORNING, 1 TAB IN SFTERNEON, 2 TABS AT BEDIME)
  7. OCUVITE [Concomitant]
     Active Substance: VITAMINS
     Dosage: UNK
     Route: 048
  8. FUROSEMIDE. [Concomitant]
     Active Substance: FUROSEMIDE
     Dosage: 40 MG, UNK
     Route: 048
     Dates: start: 20140621
  9. LEVODOPA-CARBIDOPA [Concomitant]
     Active Substance: CARBIDOPA\LEVODOPA
     Dosage: 1 DF, 4X/DAY (CARBIDOPA 25 MG/LEVODOPA 100 MG)
     Route: 048
     Dates: start: 20130916
  10. FOLIC ACID. [Concomitant]
     Active Substance: FOLIC ACID
     Dosage: 1 MG, DAILY
     Route: 048
     Dates: start: 20130916
  11. ASPIRIN. [Concomitant]
     Active Substance: ASPIRIN
     Dosage: 81 MG, UNK
     Route: 048
  12. ALBUTEROL SULFATE/IPRATROPIUM BROMIDE [Concomitant]
     Active Substance: ALBUTEROL SULFATE\IPRATROPIUM BROMIDE
     Dosage: 1 DF, 4X/DAY

REACTIONS (10)
  - Restless legs syndrome [Unknown]
  - Gait disturbance [Unknown]
  - Neuralgia [Recovering/Resolving]
  - Sleep apnoea syndrome [Unknown]
  - Nervousness [Unknown]
  - Obesity [Unknown]
  - Dyspnoea [Unknown]
  - Cor pulmonale chronic [Unknown]
  - Walking aid user [Unknown]
  - Cerumen impaction [Unknown]
